FAERS Safety Report 5274363-1 (Version None)
Quarter: 2007Q1

REPORT INFORMATION
  Report Type: 
  Country: None (occurrence: None)
  Receive Date: 20070323
  Receipt Date: 20070312
  Transmission Date: 20070707
  Serious: Yes (Death, Hospitalization, Other)
  Sender: FDA-Public Use
  Company Number: US-PFIZER INC-2006130367

PATIENT
  Sex: Female
  Weight: 55.3 kg

DRUGS (8)
  1. BEXTRA [Suspect]
     Indication: ARTHRITIS
     Dates: start: 20020805, end: 20030704
  2. DILANTIN [Suspect]
     Indication: HAEMORRHAGE
  3. ROCEPHIN [Suspect]
     Indication: URINARY TRACT INFECTION
     Route: 042
  4. LOPRESSOR [Concomitant]
  5. DECADRON [Concomitant]
  6. NORVASC [Concomitant]
  7. MAXZIDE [Concomitant]
  8. PEPCID [Concomitant]

REACTIONS (12)
  - BRONCHOPNEUMONIA [None]
  - DEHYDRATION [None]
  - DEPRESSION [None]
  - GASTROINTESTINAL EROSION [None]
  - HAEMORRHAGIC STROKE [None]
  - NEPHROSCLEROSIS [None]
  - PNEUMONIA ASPIRATION [None]
  - RENAL FAILURE ACUTE [None]
  - RESPIRATORY FAILURE [None]
  - STEVENS-JOHNSON SYNDROME [None]
  - TOXIC EPIDERMAL NECROLYSIS [None]
  - URINARY TRACT INFECTION [None]
